FAERS Safety Report 5850735-9 (Version None)
Quarter: 2008Q3

REPORT INFORMATION
  Report Type: 
  Country: None (occurrence: None)
  Receive Date: 20080819
  Receipt Date: 20080819
  Transmission Date: 20090109
  Serious: Yes (Other)
  Sender: FDA-Public Use
  Company Number: None

PATIENT
  Sex: Male
  Weight: 113.3993 kg

DRUGS (2)
  1. CYMBALTA [Suspect]
     Indication: DEPRESSION
     Dosage: 120MG DAILY PO; DONE TO 60, THEN 30 DAILY PO
     Route: 048
     Dates: start: 20050101, end: 20080701
  2. CYMBALTA [Suspect]
     Indication: DEPRESSION
     Dosage: 120MG DAILY PO; DONE TO 60, THEN 30 DAILY PO
     Route: 048
     Dates: start: 20080701, end: 20080804

REACTIONS (13)
  - ARTHRALGIA [None]
  - DEPRESSION [None]
  - DRUG EFFECT DECREASED [None]
  - DRUG WITHDRAWAL SYNDROME [None]
  - FATIGUE [None]
  - HEADACHE [None]
  - HOT FLUSH [None]
  - INSOMNIA [None]
  - IRRITABILITY [None]
  - LETHARGY [None]
  - MYALGIA [None]
  - NAUSEA [None]
  - PARAESTHESIA [None]
